FAERS Safety Report 23976369 (Version 3)
Quarter: 2025Q1

REPORT INFORMATION
  Report Type: Spontaneous
  Country: JP (occurrence: JP)
  Receive Date: 20240614
  Receipt Date: 20250319
  Transmission Date: 20250409
  Serious: Yes (Death, Other)
  Sender: GENMAB
  Company Number: JP-GENMAB-2024-01990

PATIENT
  Age: 64 Year
  Sex: Male

DRUGS (2)
  1. EPKINLY [Suspect]
     Active Substance: EPCORITAMAB-BYSP
     Indication: High-grade B-cell lymphoma
     Route: 058
     Dates: start: 20240515, end: 20240522
  2. EPKINLY [Suspect]
     Active Substance: EPCORITAMAB-BYSP
     Route: 058
     Dates: start: 20240529, end: 20240605

REACTIONS (1)
  - High-grade B-cell lymphoma [Fatal]

NARRATIVE: CASE EVENT DATE: 20240605
